FAERS Safety Report 6814283-1 (Version None)
Quarter: 2010Q3

REPORT INFORMATION
  Report Type: 
  Country: None (occurrence: None)
  Receive Date: 20100702
  Receipt Date: 20100318
  Transmission Date: 20110219
  Serious: Yes (Hospitalization)
  Sender: FDA-Public Use
  Company Number: BR-SANOFI-AVENTIS-2010SA017057

PATIENT
  Sex: Female
  Weight: 2.55 kg

DRUGS (3)
  1. CLEXANE SYRINGES [Suspect]
     Route: 064
     Dates: start: 20090801, end: 20100503
  2. CLEXANE SYRINGES [Suspect]
     Indication: FACTOR V LEIDEN MUTATION
     Route: 064
     Dates: start: 20090801, end: 20100503
  3. PURAN T4 [Suspect]
     Indication: THYROIDECTOMY
     Route: 064
     Dates: start: 19900101, end: 20100503

REACTIONS (3)
  - BLOOD MAGNESIUM DECREASED [None]
  - DRUG EXPOSURE DURING PREGNANCY [None]
  - HYPOGLYCAEMIA [None]
